FAERS Safety Report 4480631-3 (Version None)
Quarter: 2004Q4

REPORT INFORMATION
  Report Type: 
  Country: None (occurrence: None)
  Receive Date: 20041019
  Receipt Date: 20041006
  Transmission Date: 20050328
  Serious: Yes (Other)
  Sender: FDA-Public Use
  Company Number: 2004075134

PATIENT
  Age: 43 Year
  Sex: Male

DRUGS (1)
  1. NORVASC [Suspect]
     Indication: HYPERTENSION
     Dosage: 5 MG (5 MG, 1 IN 1 D)
     Dates: start: 20040101

REACTIONS (5)
  - BLOOD PRESSURE INCREASED [None]
  - BRADYCARDIA [None]
  - FLUSHING [None]
  - HEADACHE [None]
  - PANIC DISORDER [None]
